FAERS Safety Report 9182567 (Version 1)
Quarter: 2013Q1

REPORT INFORMATION
  Report Type: Spontaneous
  Country: US (occurrence: US)
  Receive Date: 20130322
  Receipt Date: 20130322
  Transmission Date: 20140127
  Serious: Yes (Other)
  Sender: FDA-Public Use
  Company Number: US-BRISTOL-MYERS SQUIBB COMPANY-16828147

PATIENT
  Age: 64 Year
  Sex: Male

DRUGS (7)
  1. ERBITUX [Suspect]
     Indication: LUNG NEOPLASM MALIGNANT
     Dosage: IV PIGGYBACK?LOADING DOSE WAS 400MG/M2 THEN 500MG/M2 Q2W
     Route: 042
     Dates: start: 20120205, end: 201207
  2. ETOPOSIDE [Suspect]
  3. CISPLATIN [Suspect]
  4. CARBOPLATIN [Suspect]
  5. NAVELBINE [Suspect]
     Route: 042
  6. GEMZAR [Suspect]
  7. TEMODAR [Suspect]

REACTIONS (1)
  - Malignant neoplasm progression [Unknown]
